FAERS Safety Report 9250949 (Version 2)
Quarter: 2013Q2

REPORT INFORMATION
  Report Type: Report from Study
  Country: SE (occurrence: SE)
  Receive Date: 20130424
  Receipt Date: 20130506
  Transmission Date: 20140414
  Serious: Yes (Death, Hospitalization, Other)
  Sender: FDA-Public Use
  Company Number: PHHY2013SE023928

PATIENT
  Age: 82 Year
  Sex: Female
  Weight: 44.5 kg

DRUGS (1)
  1. SANDOSTATIN LAR [Suspect]
     Indication: PANCREATIC NEUROENDOCRINE TUMOUR
     Dosage: UNK

REACTIONS (10)
  - Death [Fatal]
  - Syncope [Recovered/Resolved]
  - Anaemia [Recovered/Resolved]
  - Blood glucose decreased [Recovered/Resolved]
  - Leukopenia [Recovered/Resolved]
  - Thrombocytopenia [Recovered/Resolved]
  - Pyrexia [Recovered/Resolved]
  - C-reactive protein increased [Recovered/Resolved]
  - Malignant neoplasm progression [Unknown]
  - Malnutrition [Unknown]
